FAERS Safety Report 14867588 (Version 1)
Quarter: 2018Q2

REPORT INFORMATION
  Report Type: Spontaneous
  Country: AU (occurrence: AU)
  Receive Date: 20180508
  Receipt Date: 20180508
  Transmission Date: 20180711
  Serious: Yes (Death, Other)
  Sender: FDA-Public Use
  Company Number: AU-ASTRAZENECA-2018SE60830

PATIENT
  Sex: Male

DRUGS (2)
  1. TICAGRELOR. [Suspect]
     Active Substance: TICAGRELOR
     Dosage: 180
     Route: 048
  2. TENECTEPLASE [Suspect]
     Active Substance: TENECTEPLASE
     Dosage: 35
     Route: 065

REACTIONS (1)
  - Haemorrhagic stroke [Fatal]
